FAERS Safety Report 9441036 (Version 1)
Quarter: 2013Q3

REPORT INFORMATION
  Report Type: Spontaneous
  Country: US (occurrence: US)
  Receive Date: 20130805
  Receipt Date: 20130805
  Transmission Date: 20140515
  Serious: Yes (Other)
  Sender: FDA-Public Use
  Company Number: CHPA2013US012169

PATIENT
  Age: 69 Year
  Sex: Male

DRUGS (2)
  1. EXCEDRIN EXTRA STRENGTH [Suspect]
     Indication: SINUS HEADACHE
     Dosage: 2 DF, PRN
     Route: 048
  2. EXCEDRIN EXTRA STRENGTH [Suspect]
     Indication: TENSION HEADACHE

REACTIONS (4)
  - Hypertension [Recovered/Resolved]
  - Lacrimation increased [Recovered/Resolved]
  - Pollakiuria [Recovered/Resolved]
  - Therapeutic response unexpected [Unknown]
